FAERS Safety Report 5041241-2 (Version None)
Quarter: 2006Q3

REPORT INFORMATION
  Report Type: 
  Country: None (occurrence: None)
  Receive Date: 20060703
  Receipt Date: 20060627
  Transmission Date: 20061208
  Serious: Yes (Hospitalization)
  Sender: FDA-Public Use
  Company Number: 452247

PATIENT
  Sex: Male

DRUGS (3)
  1. ARTIST [Suspect]
     Indication: CARDIAC FAILURE
     Dosage: 1.25MG PER DAY
     Route: 048
     Dates: start: 20060420, end: 20060504
  2. HERBESSER [Suspect]
     Indication: DRUG USE FOR UNKNOWN INDICATION
  3. NU-LOTAN [Suspect]
     Indication: DRUG USE FOR UNKNOWN INDICATION
     Dosage: 25MG PER DAY
     Route: 048

REACTIONS (1)
  - DRUG ERUPTION [None]
